FAERS Safety Report 4537051-2 (Version None)
Quarter: 2004Q4

REPORT INFORMATION
  Report Type: 
  Country: None (occurrence: None)
  Receive Date: 20041223
  Receipt Date: 20041005
  Transmission Date: 20050328
  Serious: No
  Sender: FDA-Public Use
  Company Number: US-BRISTOL-MYERS SQUIBB COMPANY-12722427

PATIENT
  Age: 49 Year
  Sex: Male
  Weight: 70 kg

DRUGS (3)
  1. REYATAZ [Suspect]
     Indication: HIV INFECTION
     Dosage: ONGOING 3-5 MONTHS
     Route: 048
     Dates: start: 20040101
  2. ZERIT [Suspect]
     Indication: HIV INFECTION
     Dosage: ONGOING 3-5 MONTHS
     Route: 048
     Dates: start: 20040101
  3. VIREAD [Concomitant]

REACTIONS (2)
  - BURNING SENSATION [None]
  - FEELING JITTERY [None]
